FAERS Safety Report 8307817-1 (Version None)
Quarter: 2012Q2

REPORT INFORMATION
  Report Type: 
  Country: None (occurrence: None)
  Receive Date: 20120424
  Receipt Date: 20110808
  Transmission Date: 20120825
  Serious: Yes (Other)
  Sender: FDA-Public Use
  Company Number: US-TEVA-2009003656

PATIENT
  Age: 39 Year
  Sex: Male

DRUGS (2)
  1. PROVIGIL [Suspect]
     Indication: SLEEP APNOEA SYNDROME
     Dosage: 200 MILLIGRAM;
     Route: 048
     Dates: start: 20080101
  2. PROVIGIL [Suspect]
     Dosage: 200 MILLIGRAM;
     Route: 048
     Dates: end: 20090403

REACTIONS (3)
  - INSOMNIA [None]
  - MANIA [None]
  - HYPOMANIA [None]
